FAERS Safety Report 13471874 (Version 1)
Quarter: 2017Q2

REPORT INFORMATION
  Report Type: Spontaneous
  Country: GB (occurrence: GB)
  Receive Date: 20170424
  Receipt Date: 20170424
  Transmission Date: 20170830
  Serious: Yes (Life-Threatening)
  Sender: FDA-Public Use
  Company Number: GB-CONCORDIA PHARMACEUTICALS INC.-GSH201704-002398

PATIENT

DRUGS (6)
  1. VINORELBINE [Suspect]
     Active Substance: VINORELBINE\VINORELBINE TARTRATE
     Indication: HAEMATOLOGICAL MALIGNANCY
  2. PREDNISOLONE. [Suspect]
     Active Substance: PREDNISOLONE
     Indication: HAEMATOLOGICAL MALIGNANCY
  3. RITUXIMAB [Suspect]
     Active Substance: RITUXIMAB
     Indication: HAEMATOLOGICAL MALIGNANCY
  4. GEMCITABINE [Suspect]
     Active Substance: GEMCITABINE\GEMCITABINE HYDROCHLORIDE
     Indication: HAEMATOLOGICAL MALIGNANCY
  5. IFOSFAMIDE. [Suspect]
     Active Substance: IFOSFAMIDE
     Indication: HAEMATOLOGICAL MALIGNANCY
  6. MESNA. [Suspect]
     Active Substance: MESNA
     Indication: HAEMATOLOGICAL MALIGNANCY

REACTIONS (1)
  - Neutropenic sepsis [Recovered/Resolved]

NARRATIVE: CASE EVENT DATE: 20160715
